FAERS Safety Report 5635252-3 (Version None)
Quarter: 2008Q1

REPORT INFORMATION
  Report Type: 
  Country: None (occurrence: None)
  Receive Date: 20080222
  Receipt Date: 20080213
  Transmission Date: 20080703
  Serious: Yes (Other)
  Sender: FDA-Public Use
  Company Number: US-BOEHRINGER INGELHEIM GMBH, GERMANY-2008-DE-00931GD

PATIENT
  Age: 8 Year
  Sex: Female
  Weight: 29.2 kg

DRUGS (5)
  1. IPRATROPIUM BROMIDE [Suspect]
     Indication: ASTHMA
     Route: 055
  2. ALBUTEROL [Suspect]
     Indication: ASTHMA
     Dosage: 0.5 MG/KG/H
     Route: 055
  3. DEXAMETHASONE TAB [Suspect]
     Indication: ASTHMA
     Dosage: 0.2 MG/KG
     Route: 042
  4. DEXTROSE 5% AND SODIUM CHLORIDE 0.45% [Suspect]
     Indication: ASTHMA
     Route: 042
  5. PREDNISOLONE [Suspect]
     Indication: ASTHMA
     Route: 048

REACTIONS (7)
  - BLOOD PRESSURE DECREASED [None]
  - CONDITION AGGRAVATED [None]
  - DEHYDRATION [None]
  - HYPERGLYCAEMIA [None]
  - METABOLIC ACIDOSIS [None]
  - POLYURIA [None]
  - SOMNOLENCE [None]
